FAERS Safety Report 11596435 (Version 1)
Quarter: 2015Q4

REPORT INFORMATION
  Report Type: Spontaneous
  Country: US (occurrence: US)
  Receive Date: 20151006
  Receipt Date: 20151006
  Transmission Date: 20160304
  Serious: No
  Sender: FDA-Public Use
  Company Number: US-APOTEX-2015AP007777

PATIENT

DRUGS (6)
  1. MIDODRINE HYDROCHLORIDE. [Suspect]
     Active Substance: MIDODRINE HYDROCHLORIDE
     Indication: PRODUCT USED FOR UNKNOWN INDICATION
     Dosage: 10 MG, UNK
     Route: 065
  2. DROXIDOPA [Suspect]
     Active Substance: DROXIDOPA
     Indication: AUTONOMIC FAILURE SYNDROME
     Dosage: 100MG PER TITRATION
     Route: 048
     Dates: start: 201412
  3. DROXIDOPA [Suspect]
     Active Substance: DROXIDOPA
     Indication: ORTHOSTATIC HYPOTENSION
     Dosage: 100 MG, TID
     Dates: start: 20150202
  4. DROXIDOPA [Suspect]
     Active Substance: DROXIDOPA
     Indication: HYPOTENSION
     Dosage: 200 MG, TID
     Route: 065
     Dates: start: 20150209
  5. DROXIDOPA [Suspect]
     Active Substance: DROXIDOPA
     Dosage: 600 MG, TID (CAPSULE)
     Route: 048
  6. DROXIDOPA [Suspect]
     Active Substance: DROXIDOPA
     Dosage: 500 MG, TID
     Route: 048

REACTIONS (4)
  - Urticaria [Unknown]
  - Headache [Unknown]
  - Nausea [Unknown]
  - Pruritus [Unknown]

NARRATIVE: CASE EVENT DATE: 20150210
